FAERS Safety Report 4287101-6 (Version None)
Quarter: 2004Q1

REPORT INFORMATION
  Report Type: 
  Country: None (occurrence: None)
  Receive Date: 20040204
  Receipt Date: 20040203
  Transmission Date: 20041129
  Serious: Yes (Hospitalization)
  Sender: FDA-Public Use
  Company Number: 04-0007 SU

PATIENT
  Age: 73 Year
  Sex: Male

DRUGS (5)
  1. SULAR [Suspect]
     Indication: HYPERTENSION
     Dosage: 5MG, QD, PO
     Route: 048
  2. CURANTYL (DIPYRIDAMOLE) [Suspect]
     Dosage: 375MG, QD, PO
     Route: 048
     Dates: end: 20030704
  3. METOPROLOL SUCCINATE [Concomitant]
  4. GLYBURIDE [Concomitant]
  5. ZOCOR [Concomitant]

REACTIONS (6)
  - CHRONIC OBSTRUCTIVE AIRWAYS DISEASE [None]
  - DRUG INTERACTION [None]
  - HAEMOPTYSIS [None]
  - MUCOSA VESICLE [None]
  - PROTHROMBIN TIME ABNORMAL [None]
  - PULMONARY BULLA [None]
